FAERS Safety Report 9924641 (Version 1)
Quarter: 2014Q1

REPORT INFORMATION
  Report Type: Spontaneous
  Country: US (occurrence: None)
  Receive Date: 20140224
  Receipt Date: 20140224
  Transmission Date: 20141002
  Serious: Yes (Other)
  Sender: FDA-Public Use
  Company Number: None

PATIENT
  Age: 35 Year
  Sex: Male
  Weight: 74.84 kg

DRUGS (6)
  1. AMPHETAMINE [Suspect]
     Indication: ATTENTION DEFICIT/HYPERACTIVITY DISORDER
     Dosage: 1/2 TABLET
     Route: 048
     Dates: start: 20140204, end: 20140222
  2. CALCIUM + VIT. D [Concomitant]
  3. FISH OIL [Concomitant]
  4. MULTIVITAMIN [Concomitant]
  5. ZOLPIDEM TARTRATE 10MG [Concomitant]
  6. ALBUTEROL MDI [Concomitant]

REACTIONS (8)
  - Insomnia [None]
  - Asthma exercise induced [None]
  - Myofascial pain syndrome [None]
  - Bruxism [None]
  - Psychomotor hyperactivity [None]
  - Anxiety [None]
  - Activities of daily living impaired [None]
  - Product substitution issue [None]
